FAERS Safety Report 8581541-2 (Version None)
Quarter: 2012Q3

REPORT INFORMATION
  Report Type: 
  Country: None (occurrence: None)
  Receive Date: 20120809
  Receipt Date: 20110729
  Transmission Date: 20120928
  Serious: No
  Sender: FDA-Public Use
  Company Number: US-MUTUAL PHARMACEUTICAL COMPANY, INC.-DXCY20110011

PATIENT
  Sex: Female
  Weight: 45.4 kg

DRUGS (2)
  1. DOXYCYCLINE HYCLATE [Suspect]
     Indication: ARTHROPOD STING
     Route: 048
     Dates: start: 20110728, end: 20110728
  2. PREDNISONE TAB [Suspect]
     Indication: ARTHROPOD STING
     Route: 048
     Dates: start: 20110728, end: 20110728

REACTIONS (3)
  - FLATULENCE [None]
  - DIARRHOEA [None]
  - OFF LABEL USE [None]
